FAERS Safety Report 7455904-2 (Version None)
Quarter: 2011Q2

REPORT INFORMATION
  Report Type: 
  Country: None (occurrence: None)
  Receive Date: 20110503
  Receipt Date: 20110427
  Transmission Date: 20111010
  Serious: Yes (Hospitalization)
  Sender: FDA-Public Use
  Company Number: B0715738A

PATIENT
  Sex: Male

DRUGS (7)
  1. DIALGIREX [Suspect]
     Route: 048
     Dates: end: 20110301
  2. REQUIP [Suspect]
     Dosage: 2MG FOUR TIMES PER DAY
     Route: 048
     Dates: end: 20110301
  3. TOPALGIC (FRANCE) [Suspect]
     Route: 048
     Dates: end: 20110301
  4. RISPERDAL [Suspect]
     Route: 048
     Dates: end: 20110301
  5. ACETAMINOPHEN [Concomitant]
     Indication: PAIN
     Route: 065
  6. LAMALINE [Concomitant]
     Indication: PAIN
     Route: 065
  7. ANTIHYPERTENSIVE (UNSPECIFIED) [Concomitant]
     Route: 065

REACTIONS (7)
  - AGITATION [None]
  - RAPID EYE MOVEMENTS SLEEP ABNORMAL [None]
  - CONFUSIONAL STATE [None]
  - HALLUCINATION, VISUAL [None]
  - DELIRIUM [None]
  - ABNORMAL BEHAVIOUR [None]
  - TRANCE [None]
